FAERS Safety Report 5005141-6 (Version None)
Quarter: 2006Q2

REPORT INFORMATION
  Report Type: 
  Country: None (occurrence: None)
  Receive Date: 20060518
  Receipt Date: 20060327
  Transmission Date: 20061013
  Serious: No
  Sender: FDA-Public Use
  Company Number: US-AVENTIS-200612953US

PATIENT
  Sex: Male

DRUGS (8)
  1. NASACORT [Suspect]
     Indication: SINUSITIS
     Dosage: DOSE: 2 SPRAYS/NOSTRIL
     Dates: start: 20060310
  2. ZICAM [Suspect]
     Dosage: DOSE: UNKNOWN
  3. NEXIUM [Concomitant]
     Dosage: DOSE: UNKNOWN
  4. LIPITOR [Concomitant]
     Dosage: DOSE: UNKNOWN
  5. DITROPAN XL [Concomitant]
     Dosage: DOSE: UNKNOWN
  6. DOXAZOSIN [Concomitant]
     Dosage: DOSE: UNKNOWN
  7. ASMANEX                                 /CAN/ [Concomitant]
     Dosage: DOSE: UNKNOWN
  8. ALLEGRA [Concomitant]
     Dosage: DOSE: UNKNOWN

REACTIONS (3)
  - BRONCHITIS [None]
  - LOSS OF CONSCIOUSNESS [None]
  - PYREXIA [None]
